FAERS Safety Report 7440621-5 (Version None)
Quarter: 2011Q2

REPORT INFORMATION
  Report Type: 
  Country: None (occurrence: None)
  Receive Date: 20110427
  Receipt Date: 20110419
  Transmission Date: 20111010
  Serious: Yes (Other)
  Sender: FDA-Public Use
  Company Number: B0715379A

PATIENT
  Sex: Female

DRUGS (1)
  1. ZOVIRAX [Suspect]
     Dosage: 800MG FIVE TIMES PER DAY
     Route: 065

REACTIONS (3)
  - C-REACTIVE PROTEIN INCREASED [None]
  - HEPATIC ENZYME INCREASED [None]
  - PYREXIA [None]
